FAERS Safety Report 6043725-7 (Version None)
Quarter: 2009Q1

REPORT INFORMATION
  Report Type: 
  Country: None (occurrence: None)
  Receive Date: 20090120
  Receipt Date: 20090108
  Transmission Date: 20090719
  Serious: Yes (Other)
  Sender: FDA-Public Use
  Company Number: PHHY2009FR00942

PATIENT

DRUGS (1)
  1. ACLASTA [Suspect]
     Indication: OSTEOPOROSIS
     Dosage: 5 MG
     Dates: start: 20081225

REACTIONS (5)
  - ARTHRALGIA [None]
  - INFLAMMATION [None]
  - MYALGIA [None]
  - PYREXIA [None]
  - THROMBOSIS [None]
